FAERS Safety Report 5884269-2 (Version None)
Quarter: 2008Q3

REPORT INFORMATION
  Report Type: 
  Country: None (occurrence: None)
  Receive Date: 20080911
  Receipt Date: 20080901
  Transmission Date: 20090109
  Serious: Yes (Other)
  Sender: FDA-Public Use
  Company Number: 430002L08ESP

PATIENT
  Age: 23 Year
  Sex: Male

DRUGS (1)
  1. MITOXANTRONE HYDROCHLORIDE [Suspect]
     Indication: MULTIPLE SCLEROSIS
     Dosage: 10 MG/M2, 1 IN 1 MONTHS

REACTIONS (1)
  - ACUTE PROMYELOCYTIC LEUKAEMIA [None]
